FAERS Safety Report 6041363-3 (Version None)
Quarter: 2009Q1

REPORT INFORMATION
  Report Type: 
  Country: None (occurrence: None)
  Receive Date: 20090116
  Receipt Date: 20081008
  Transmission Date: 20090719
  Serious: No
  Sender: FDA-Public Use
  Company Number: US-BRISTOL-MYERS SQUIBB COMPANY-14361505

PATIENT
  Age: 50 Year
  Sex: Female

DRUGS (2)
  1. ABILIFY [Suspect]
     Indication: AFFECTIVE DISORDER
     Dosage: STARTED AS 10MG ON 19-JUN-08 AND INCREASED UP TO 15MG THEN DECREASED TO 10MG.
     Dates: start: 20080619
  2. LITHIUM [Concomitant]

REACTIONS (1)
  - TREMOR [None]
